FAERS Safety Report 6004178-8 (Version None)
Quarter: 2008Q4

REPORT INFORMATION
  Report Type: 
  Country: None (occurrence: None)
  Receive Date: 20081216
  Receipt Date: 20080726
  Transmission Date: 20090506
  Serious: No
  Sender: FDA-Public Use
  Company Number: US-AMGEN-KDL297317

PATIENT
  Sex: Female

DRUGS (3)
  1. ENBREL [Suspect]
     Indication: RHEUMATOID ARTHRITIS
     Route: 058
     Dates: start: 20080703
  2. PLAQUENIL [Concomitant]
     Dates: start: 19991201
  3. METHOTREXATE [Concomitant]
     Dates: start: 20050101

REACTIONS (2)
  - INJECTION SITE ERYTHEMA [None]
  - INJECTION SITE SWELLING [None]
